FAERS Safety Report 7634581-1 (Version None)
Quarter: 2011Q3

REPORT INFORMATION
  Report Type: 
  Country: None (occurrence: None)
  Receive Date: 20110725
  Receipt Date: 20110715
  Transmission Date: 20111222
  Serious: Yes (Hospitalization)
  Sender: FDA-Public Use
  Company Number: US-ASTRAZENECA-2011SE38760

PATIENT
  Age: 38 Year
  Sex: Male
  Weight: 79.4 kg

DRUGS (7)
  1. LAMICTAL [Concomitant]
  2. METHOCARBAMOL [Concomitant]
  3. SEROQUEL XR [Suspect]
     Indication: BIPOLAR DISORDER
     Route: 048
     Dates: start: 20080101
  4. KLONOPIN [Concomitant]
  5. LITHIUM CARBONATE [Concomitant]
  6. SEROQUEL XR [Suspect]
     Indication: SCHIZOPHRENIA
     Route: 048
     Dates: start: 20080101
  7. ZOLOFT [Concomitant]

REACTIONS (6)
  - AGRAPHIA [None]
  - MALAISE [None]
  - DRUG DOSE OMISSION [None]
  - MANIA [None]
  - TREMOR [None]
  - INSOMNIA [None]
